FAERS Safety Report 7389442-2 (Version None)
Quarter: 2011Q2

REPORT INFORMATION
  Report Type: 
  Country: None (occurrence: None)
  Receive Date: 20110401
  Receipt Date: 20110323
  Transmission Date: 20111010
  Serious: Yes (Other)
  Sender: FDA-Public Use
  Company Number: BR-BRISTOL-MYERS SQUIBB COMPANY-15632300

PATIENT
  Age: 67 Year
  Sex: Male
  Weight: 70 kg

DRUGS (6)
  1. LAMIVUDINE [Suspect]
     Indication: HIV INFECTION
     Dates: start: 20050901
  2. LOSARTAN POTASSIUM [Concomitant]
  3. FENOFIBRATE [Concomitant]
  4. ABLOK PLUS [Concomitant]
  5. REYATAZ [Suspect]
     Indication: HIV INFECTION
     Route: 048
     Dates: start: 20050901
  6. ZIDOVUDINE [Suspect]
     Indication: HIV INFECTION
     Dates: start: 20050901

REACTIONS (1)
  - RENAL FAILURE [None]
